FAERS Safety Report 4500787-3 (Version None)
Quarter: 2004Q4

REPORT INFORMATION
  Report Type: 
  Country: None (occurrence: None)
  Receive Date: 20041112
  Receipt Date: 20041112
  Transmission Date: 20050328
  Serious: Yes (Hospitalization)
  Sender: FDA-Public Use
  Company Number: None

PATIENT
  Age: 83 Year
  Sex: Male
  Weight: 82.1011 kg

DRUGS (10)
  1. MELOXICAM [Suspect]
     Indication: OSTEOARTHRITIS
     Dosage: 15 MG DAILY PO CHRONIC
     Route: 048
  2. WARFARIN SODIUM [Suspect]
     Indication: ATRIAL FIBRILLATION
     Dosage: 5MG MWFSS, 2.5MG TU TH
     Dates: start: 20040101
  3. NORVASC [Concomitant]
  4. DOXAZOCIN [Concomitant]
  5. DIOVAN [Concomitant]
  6. HYDROCHLOROTHIAZIDE [Concomitant]
  7. M.V.I. [Concomitant]
  8. ZOCOR [Concomitant]
  9. WARFARIN SODIUM [Concomitant]
  10. ASPIRIN [Concomitant]

REACTIONS (6)
  - ABDOMINAL PAIN [None]
  - DUODENAL ULCER [None]
  - HAEMORRHAGE [None]
  - INTERNATIONAL NORMALISED RATIO INCREASED [None]
  - MELAENA [None]
  - NAUSEA [None]
